FAERS Safety Report 14144593 (Version 1)
Quarter: 2017Q4

REPORT INFORMATION
  Report Type: Report from Study
  Country: None (occurrence: US)
  Receive Date: 20171031
  Receipt Date: 20171031
  Transmission Date: 20180321
  Serious: Yes (Hospitalization)
  Sender: FDA-Public Use
  Company Number: US-VIFOR (INTERNATIONAL) INC.-VIT-2017-11711

PATIENT
  Sex: Female

DRUGS (17)
  1. PANTOPRAZOLE [Concomitant]
     Active Substance: PANTOPRAZOLE
  2. LOSARTAN POTASSIUM. [Concomitant]
     Active Substance: LOSARTAN POTASSIUM
  3. CLOPIDOGREL [Concomitant]
     Active Substance: CLOPIDOGREL BISULFATE
  4. SYNTHROID [Concomitant]
     Active Substance: LEVOTHYROXINE SODIUM
  5. MONTELUKAST [Concomitant]
     Active Substance: MONTELUKAST SODIUM
  6. AZELASTINE. [Concomitant]
     Active Substance: AZELASTINE HYDROCHLORIDE
  7. TRAMADOL HYDROCHLORIDE. [Concomitant]
     Active Substance: TRAMADOL HYDROCHLORIDE
  8. TUZISTRA XR [Concomitant]
     Active Substance: CHLORPHENIRAMINE MALEATE\CODEINE PHOSPHATE ANHYDROUS
  9. LEVOTHYROXINE. [Concomitant]
     Active Substance: LEVOTHYROXINE
  10. VELTASSA [Suspect]
     Active Substance: PATIROMER
     Indication: HYPERKALAEMIA
     Route: 048
     Dates: start: 201704, end: 2017
  11. ADAVIR DISKUS [Concomitant]
  12. SPIRONOLACTONE. [Concomitant]
     Active Substance: SPIRONOLACTONE
  13. ATORVASTATIN [Concomitant]
     Active Substance: ATORVASTATIN
  14. AMLODIPINE [Concomitant]
     Active Substance: AMLODIPINE BESYLATE
  15. AMOXICILLIN~~CLAVULANATE POTASSIUM [Concomitant]
  16. METHYLPREDNISOLONE ACETATE. [Concomitant]
     Active Substance: METHYLPREDNISOLONE ACETATE
  17. BUMETANIDE. [Concomitant]
     Active Substance: BUMETANIDE

REACTIONS (3)
  - Inappropriate schedule of drug administration [Unknown]
  - Spinal cord operation [Recovering/Resolving]
  - Unevaluable event [Not Recovered/Not Resolved]

NARRATIVE: CASE EVENT DATE: 2017
